FAERS Safety Report 17482443 (Version 1)
Quarter: 2020Q1

REPORT INFORMATION
  Report Type: Spontaneous
  Country: US (occurrence: US)
  Receive Date: 20200302
  Receipt Date: 20200302
  Transmission Date: 20200409
  Serious: No
  Sender: FDA-Public Use
  Company Number: US-MYLANLABS-2020M1020318

PATIENT
  Age: 23 Year
  Sex: Male
  Weight: 73 kg

DRUGS (1)
  1. DYMISTA [Suspect]
     Active Substance: AZELASTINE HYDROCHLORIDE\FLUTICASONE PROPIONATE
     Indication: PRODUCT USED FOR UNKNOWN INDICATION
     Dosage: GIVEN 2 SPRAYS IN EACH NOSTRIL INSTEAD OF 1 SPRAY AS DIRECTIONS STATE
     Route: 045
     Dates: start: 20200219

REACTIONS (1)
  - Wrong dose [Not Recovered/Not Resolved]

NARRATIVE: CASE EVENT DATE: 20200219
